FAERS Safety Report 4327803-6 (Version None)
Quarter: 2004Q1

REPORT INFORMATION
  Report Type: 
  Country: None (occurrence: None)
  Receive Date: 20040325
  Receipt Date: 20040309
  Transmission Date: 20041129
  Serious: Yes (Hospitalization)
  Sender: FDA-Public Use
  Company Number: AU-JNJFOC-20040304350

PATIENT
  Age: 40 Year
  Sex: Female

DRUGS (2)
  1. TRAMADOL HCL [Suspect]
     Indication: SCIATICA
     Dosage: 100 MG, 1 IN, ORAL
     Route: 048
     Dates: start: 20030216, end: 20030216
  2. PANADEINE FORTE (PANADEINE CO) [Suspect]
     Indication: SCIATICA
     Dosage: ORAL
     Route: 048

REACTIONS (3)
  - DEPRESSED LEVEL OF CONSCIOUSNESS [None]
  - DRUG INTERACTION [None]
  - TONIC CONVULSION [None]
